FAERS Safety Report 20065827 (Version 1)
Quarter: 2021Q4

REPORT INFORMATION
  Report Type: Spontaneous
  Country: US (occurrence: US)
  Receive Date: 20211114
  Receipt Date: 20211114
  Transmission Date: 20220303
  Serious: Yes (Life-Threatening, Hospitalization)
  Sender: FDA-Public Use
  Company Number: US-JNJFOC-20211103337

PATIENT
  Age: 22 Year
  Sex: Female
  Weight: 56 kg

DRUGS (2)
  1. TYLENOL PM [Suspect]
     Active Substance: ACETAMINOPHEN\DIPHENHYDRAMINE
     Indication: Suicide attempt
     Dosage: ACETAMINOPHEN 500 MG/ DIPHENHYDRAMINE HCL 25 MG WITH TOTAL SINGLE DOSE OF ACETAMINOPHEN 17500 MG/ DI
     Route: 048
     Dates: start: 20030425, end: 20030425
  2. ZOLOFT [Concomitant]
     Active Substance: SERTRALINE HYDROCHLORIDE
     Indication: Product used for unknown indication
     Dosage: 100 MG FOR 24 MONTHS
     Route: 065
     Dates: end: 20030425

REACTIONS (8)
  - Suicide attempt [Recovered/Resolved]
  - Sinusitis [Recovered/Resolved]
  - Atelectasis [Recovered/Resolved]
  - Pulmonary oedema [Recovered/Resolved]
  - Pleural effusion [Recovered/Resolved]
  - Intentional overdose [Recovered/Resolved]
  - Acute hepatic failure [Recovered/Resolved]
  - Acute kidney injury [Recovered/Resolved]

NARRATIVE: CASE EVENT DATE: 20030428
